FAERS Safety Report 18359156 (Version 1)
Quarter: 2020Q4

REPORT INFORMATION
  Report Type: Spontaneous
  Country: US (occurrence: US)
  Receive Date: 20201008
  Receipt Date: 20201008
  Transmission Date: 20210114
  Serious: No
  Sender: FDA-Public Use
  Company Number: US-AUROBINDO-AUR-APL-2020-026424

PATIENT
  Age: 74 Year
  Sex: Female

DRUGS (2)
  1. VITAMIN B12 [Suspect]
     Active Substance: CYANOCOBALAMIN
     Indication: FIBROMYALGIA
     Dosage: UNK
     Route: 065
  2. OMEPRAZOLE DELAYED-RELEASE CAPSULES USP 10MG [Suspect]
     Active Substance: OMEPRAZOLE
     Indication: PRODUCT USED FOR UNKNOWN INDICATION
     Dosage: UNK
     Route: 065

REACTIONS (2)
  - Nausea [Unknown]
  - Reaction to excipient [Unknown]
